FAERS Safety Report 16008876 (Version 1)
Quarter: 2019Q1

REPORT INFORMATION
  Report Type: Spontaneous
  Country: US (occurrence: US)
  Receive Date: 20190225
  Receipt Date: 20190225
  Transmission Date: 20190418
  Serious: No
  Sender: FDA-Public Use
  Company Number: US-GLAXOSMITHKLINE-US2019032165

PATIENT
  Age: 60 Year
  Sex: Female
  Weight: 58 kg

DRUGS (6)
  1. ASCORBIC ACID TABLET [Concomitant]
     Indication: SUPPLEMENTATION THERAPY
     Dosage: 500 MG, QD (FROM YEARS)
     Route: 048
  2. LOPROX [Suspect]
     Active Substance: CICLOPIROX\CICLOPIROX OLAMINE
     Indication: DERMATITIS
     Dosage: UNK
     Route: 065
  3. SULFACETAMIDE SODIUM CUTANEOUS EMULSION [Suspect]
     Active Substance: SULFACETAMIDE SODIUM
     Indication: DERMATITIS
     Dosage: UNK UNK, BID
     Route: 065
  4. BIOTIN TABLET [Concomitant]
     Indication: SUPPLEMENTATION THERAPY
     Dosage: 2500 UG, QD (FROM YEARS)
     Route: 048
  5. SULFACETAMIDE SODIUM CUTANEOUS EMULSION [Suspect]
     Active Substance: SULFACETAMIDE SODIUM
     Dosage: UNK UNK, QD
     Route: 065
  6. LAMISIL [Suspect]
     Active Substance: TERBINAFINE HYDROCHLORIDE
     Indication: DERMATITIS
     Dosage: UNK
     Route: 065

REACTIONS (3)
  - Drug ineffective [Unknown]
  - Pain of skin [Recovered/Resolved]
  - Nasopharyngitis [Unknown]

NARRATIVE: CASE EVENT DATE: 20180628
